FAERS Safety Report 22709427 (Version 9)
Quarter: 2024Q3

REPORT INFORMATION
  Report Type: Spontaneous
  Country: CA (occurrence: CA)
  Receive Date: 20230717
  Receipt Date: 20240720
  Transmission Date: 20241017
  Serious: Yes (Other)
  Sender: CELLTRION
  Company Number: CA-CELLTRION INC.-2022CA015235

PATIENT

DRUGS (17)
  1. INFLECTRA [Suspect]
     Active Substance: INFLIXIMAB-DYYB
     Indication: Colitis ulcerative
     Dosage: 700 MG, EVERY 6 WEEKS
     Route: 042
     Dates: start: 20200224, end: 20210531
  2. INFLECTRA [Suspect]
     Active Substance: INFLIXIMAB-DYYB
     Dosage: 700 MG, EVERY 8 WEEKS
     Route: 042
     Dates: start: 20210726, end: 20211115
  3. INFLECTRA [Suspect]
     Active Substance: INFLIXIMAB-DYYB
     Dosage: 700 MG, EVERY 6 WEEKS
     Route: 042
     Dates: start: 20211228
  4. INFLECTRA [Suspect]
     Active Substance: INFLIXIMAB-DYYB
     Dosage: 700 MG, EVERY 6 WEEKS
     Route: 042
     Dates: start: 20220725
  5. INFLECTRA [Suspect]
     Active Substance: INFLIXIMAB-DYYB
     Dosage: 700 MG, EVERY 6 WEEKS
     Route: 042
     Dates: start: 20220916
  6. INFLECTRA [Suspect]
     Active Substance: INFLIXIMAB-DYYB
     Dosage: 700 MG, EVERY 6 WEEKS
     Route: 042
     Dates: start: 20221212
  7. INFLECTRA [Suspect]
     Active Substance: INFLIXIMAB-DYYB
     Dosage: 700 MG, EVERY 6 WEEKS
     Route: 042
     Dates: start: 20230123
  8. INFLECTRA [Suspect]
     Active Substance: INFLIXIMAB-DYYB
     Dosage: 700 MG, EVERY 6 WEEKS
     Route: 042
     Dates: start: 20230306
  9. INFLECTRA [Suspect]
     Active Substance: INFLIXIMAB-DYYB
     Dosage: 700 MG, EVERY 6 WEEKS
     Route: 042
     Dates: start: 20230529
  10. INFLECTRA [Suspect]
     Active Substance: INFLIXIMAB-DYYB
     Dosage: 700 MG, EVERY 6 WEEKS
     Route: 042
     Dates: start: 20230710
  11. INFLECTRA [Suspect]
     Active Substance: INFLIXIMAB-DYYB
     Dosage: 700 MG, EVERY 6 WEEKS
     Route: 042
     Dates: start: 20231005
  12. INFLECTRA [Suspect]
     Active Substance: INFLIXIMAB-DYYB
     Dosage: 700 MG, EVERY 6 WEEKS
     Route: 042
  13. INFLECTRA [Suspect]
     Active Substance: INFLIXIMAB-DYYB
     Dosage: 700 MG, EVERY 8 WEEKS
     Route: 042
  14. INFLECTRA [Suspect]
     Active Substance: INFLIXIMAB-DYYB
     Dosage: 700 MG, EVERY 6 WEEKS
     Route: 042
     Dates: start: 20231129
  15. INFLECTRA [Suspect]
     Active Substance: INFLIXIMAB-DYYB
     Dosage: 700 MG, EVERY 6 WEEKS
     Route: 042
     Dates: start: 20240711
  16. CLONAZEPAM [Concomitant]
     Active Substance: CLONAZEPAM
     Dosage: UNK
  17. ESCITALOPRAM OXALATE [Concomitant]
     Active Substance: ESCITALOPRAM OXALATE
     Dosage: UNK

REACTIONS (29)
  - Neoplasm [Not Recovered/Not Resolved]
  - Skin infection [Recovering/Resolving]
  - Eye disorder [Not Recovered/Not Resolved]
  - Corneal cross linking [Unknown]
  - Viral labyrinthitis [Not Recovered/Not Resolved]
  - Asthenopia [Not Recovered/Not Resolved]
  - Ear disorder [Not Recovered/Not Resolved]
  - Head discomfort [Not Recovered/Not Resolved]
  - Neck pain [Unknown]
  - Skin disorder [Not Recovered/Not Resolved]
  - Folliculitis [Not Recovered/Not Resolved]
  - Eye infection bacterial [Not Recovered/Not Resolved]
  - Vertigo [Unknown]
  - Migraine [Not Recovered/Not Resolved]
  - Sinus pain [Unknown]
  - Paranasal sinus discomfort [Unknown]
  - Ear pruritus [Unknown]
  - Eye pain [Unknown]
  - Skin burning sensation [Unknown]
  - Visual impairment [Unknown]
  - Hypoaesthesia [Unknown]
  - Ocular discomfort [Unknown]
  - Mucosal haemorrhage [Unknown]
  - Sputum discoloured [Unknown]
  - Flushing [Unknown]
  - Vision blurred [Unknown]
  - Tinnitus [Unknown]
  - Scrotal swelling [Unknown]
  - Off label use [Unknown]

NARRATIVE: CASE EVENT DATE: 20200224
